FAERS Safety Report 15801527 (Version 1)
Quarter: 2019Q1

REPORT INFORMATION
  Report Type: Spontaneous
  Country: DE (occurrence: DE)
  Receive Date: 20190109
  Receipt Date: 20190109
  Transmission Date: 20190417
  Serious: Yes (Other)
  Sender: FDA-Public Use
  Company Number: DE-MYLANLABS-2019M1001045

PATIENT
  Sex: Female

DRUGS (1)
  1. LORAZEPAM DURA 1 MG TABLETTEN [Suspect]
     Active Substance: LORAZEPAM
     Indication: PRODUCT USED FOR UNKNOWN INDICATION
     Dosage: UNK

REACTIONS (3)
  - Somnolence [Unknown]
  - Arrhythmia [Unknown]
  - Dizziness [Unknown]
